FAERS Safety Report 12046600 (Version 3)
Quarter: 2016Q4

REPORT INFORMATION
  Report Type: Spontaneous
  Country: ZW (occurrence: ZW)
  Receive Date: 20160208
  Receipt Date: 20161201
  Transmission Date: 20170206
  Serious: Yes (Other)
  Sender: FDA-Public Use
  Company Number: ZW-ABBVIE-16P-190-1552009-00

PATIENT
  Age: 23 Year
  Sex: Female

DRUGS (3)
  1. VIDEX [Suspect]
     Active Substance: DIDANOSINE
     Indication: PRODUCT USED FOR UNKNOWN INDICATION
     Dosage: FIRST EXPOSURE TRIMESTER
     Route: 048
     Dates: start: 20120725
  2. KALETRA [Suspect]
     Active Substance: LOPINAVIR\RITONAVIR
     Indication: PRODUCT USED FOR UNKNOWN INDICATION
     Dosage: FIRST TRIMESTER EXPOSURE
     Route: 048
     Dates: start: 20120725
  3. ABACAVIR. [Suspect]
     Active Substance: ABACAVIR
     Indication: PRODUCT USED FOR UNKNOWN INDICATION
     Dosage: FIRST TRIMESTER EXPOSURE
     Route: 048
     Dates: start: 20120725

REACTIONS (3)
  - Exposure during pregnancy [Unknown]
  - Abortion spontaneous [Recovered/Resolved]
  - Foetal death [Unknown]

NARRATIVE: CASE EVENT DATE: 20121002
